FAERS Safety Report 19894059 (Version 2)
Quarter: 2022Q1

REPORT INFORMATION
  Report Type: Report from Study
  Country: US (occurrence: US)
  Receive Date: 20210928
  Receipt Date: 20220117
  Transmission Date: 20220423
  Serious: No
  Sender: FDA-Public Use
  Company Number: US-KYOWAKIRIN-2021BKK015957

PATIENT

DRUGS (1)
  1. CRYSVITA [Suspect]
     Active Substance: BUROSUMAB-TWZA
     Indication: Hereditary hypophosphataemic rickets
     Dosage: 90 MG,EVERY 28 DAYS
     Route: 065
     Dates: start: 201808

REACTIONS (2)
  - Bone pain [Recovered/Resolved]
  - Wrong technique in product usage process [Not Recovered/Not Resolved]
